FAERS Safety Report 25374147 (Version 1)
Quarter: 2025Q2

REPORT INFORMATION
  Report Type: Spontaneous
  Country: US (occurrence: None)
  Receive Date: 20250529
  Receipt Date: 20250529
  Transmission Date: 20250716
  Serious: Yes (Hospitalization)
  Sender: FDA-CTU
  Company Number: None

PATIENT
  Age: 61 Year
  Sex: Female
  Weight: 96.1 kg

DRUGS (3)
  1. CARBOPLATIN [Suspect]
     Active Substance: CARBOPLATIN
     Dates: end: 20250513
  2. TAXOTERE [Suspect]
     Active Substance: DOCETAXEL
     Dates: end: 20250513
  3. PEMBROLIZUMAB [Suspect]
     Active Substance: PEMBROLIZUMAB
     Dates: end: 20250513

REACTIONS (13)
  - Abdominal pain [None]
  - Nausea [None]
  - Diarrhoea [None]
  - Vomiting [None]
  - Decreased appetite [None]
  - Malaise [None]
  - Fatigue [None]
  - Faeces discoloured [None]
  - Abnormal faeces [None]
  - Procalcitonin increased [None]
  - Bacterial sepsis [None]
  - Clostridium difficile infection [None]
  - Haemoglobin decreased [None]

NARRATIVE: CASE EVENT DATE: 20250522
